FAERS Safety Report 14474771 (Version 3)
Quarter: 2018Q1

REPORT INFORMATION
  Report Type: Spontaneous
  Country: JP (occurrence: JP)
  Receive Date: 20180201
  Receipt Date: 20180206
  Transmission Date: 20180509
  Serious: Yes (Death)
  Sender: FDA-Public Use
  Company Number: JP-PFIZER INC-2018042809

PATIENT
  Age: 85 Year
  Sex: Female

DRUGS (1)
  1. FOSPHENYTOIN SODIUM. [Suspect]
     Active Substance: FOSPHENYTOIN SODIUM
     Dosage: UNK
     Route: 042

REACTIONS (3)
  - Torsade de pointes [Fatal]
  - Cardiac arrest [Fatal]
  - Drug administration error [Unknown]
